FAERS Safety Report 15885812 (Version 6)
Quarter: 2019Q2

REPORT INFORMATION
  Report Type: Spontaneous
  Country: US (occurrence: US)
  Receive Date: 20190129
  Receipt Date: 20190617
  Transmission Date: 20190711
  Serious: No
  Sender: FDA-Public Use
  Company Number: US-SA-2019SA021183

PATIENT
  Age: 70 Year
  Sex: Female

DRUGS (1)
  1. DUPIXENT [Suspect]
     Active Substance: DUPILUMAB
     Indication: DERMATITIS ATOPIC
     Dosage: 300 MG, QOW
     Route: 058
     Dates: start: 201901

REACTIONS (7)
  - Pruritus [Unknown]
  - Nasopharyngitis [Unknown]
  - Sinusitis [Unknown]
  - Contusion [Unknown]
  - Erythema [Unknown]
  - Feeling hot [Unknown]
  - Weight increased [Unknown]
